FAERS Safety Report 10736853 (Version 1)
Quarter: 2015Q1

REPORT INFORMATION
  Report Type: Spontaneous
  Country: US (occurrence: None)
  Receive Date: 20150123
  Receipt Date: 20150123
  Transmission Date: 20150721
  Serious: Yes (Hospitalization)
  Sender: FDA-Public Use
  Company Number: None

PATIENT
  Age: 67 Year
  Sex: Female
  Weight: 68.6 kg

DRUGS (16)
  1. ALPRAZOLAM. [Concomitant]
     Active Substance: ALPRAZOLAM
  2. FLUCONAZOLE. [Concomitant]
     Active Substance: FLUCONAZOLE
  3. SULFAMETHOXAZOLE WITH TRIMETHOPRIM [Concomitant]
  4. DAUNORUBICIN [Suspect]
     Active Substance: DAUNORUBICIN
     Dates: end: 20150109
  5. ALLOPURINOL. [Concomitant]
     Active Substance: ALLOPURINOL
  6. TRAMADOL [Concomitant]
     Active Substance: TRAMADOL
  7. METHOTREXATE [Suspect]
     Active Substance: METHOTREXATE
     Dates: end: 20150108
  8. SENNOSIDES WITH DOCUSATE [Concomitant]
  9. ACYCLOVIR. [Concomitant]
     Active Substance: ACYCLOVIR
  10. ALUMINUM-MAGNESIUM WITH SIMETHICONE [Concomitant]
  11. PANTOPRAZOLE [Concomitant]
     Active Substance: PANTOPRAZOLE SODIUM
  12. SUCRALFATE. [Concomitant]
     Active Substance: SUCRALFATE
  13. VINCRISTINE SULFATE. [Suspect]
     Active Substance: VINCRISTINE SULFATE
     Dates: end: 20150109
  14. ESCITALOPRAM [Concomitant]
     Active Substance: ESCITALOPRAM OXALATE
  15. POLYETHYLENE GLYCOL (MIRALAX) [Concomitant]
  16. FILGRASTIM [Concomitant]
     Active Substance: FILGRASTIM

REACTIONS (11)
  - Anxiety [None]
  - Escherichia test positive [None]
  - Alanine aminotransferase increased [None]
  - Refusal of treatment by patient [None]
  - Blood alkaline phosphatase increased [None]
  - Palpitations [None]
  - Helicobacter infection [None]
  - Chills [None]
  - Dyspnoea [None]
  - Aspartate aminotransferase increased [None]
  - Body temperature increased [None]

NARRATIVE: CASE EVENT DATE: 20150110
